FAERS Safety Report 20722802 (Version 1)
Quarter: 2022Q2

REPORT INFORMATION
  Report Type: Other
  Country: US (occurrence: None)
  Receive Date: 20220419
  Receipt Date: 20220419
  Transmission Date: 20220721
  Serious: Yes (Other)
  Sender: FDA-Public Use
  Company Number: US-ROCHE-3078765

PATIENT
  Sex: Male

DRUGS (6)
  1. ESBRIET [Suspect]
     Active Substance: PIRFENIDONE
     Indication: Pulmonary fibrosis
     Dosage: TAKE 1 CAPSULE BY MOUTH 3 TIMES A DAY WITH MEALS FOR 7 DAYS. THEN, TAKE 2 CAPSULE(S) BY MOUTH 3 TIME
     Route: 048
  2. ESBRIET [Suspect]
     Active Substance: PIRFENIDONE
     Indication: Bronchiectasis
  3. ESBRIET [Suspect]
     Active Substance: PIRFENIDONE
     Indication: Lower respiratory tract infection
  4. INSULIN NOS [Concomitant]
     Active Substance: INSULIN NOS
  5. ELIQUIS [Concomitant]
     Active Substance: APIXABAN
  6. PREDNISONE [Concomitant]
     Active Substance: PREDNISONE

REACTIONS (1)
  - Diabetes mellitus [Unknown]
